FAERS Safety Report 8215153-7 (Version None)
Quarter: 2012Q1

REPORT INFORMATION
  Report Type: 
  Country: None (occurrence: None)
  Receive Date: 20120229
  Receipt Date: 20110223
  Transmission Date: 20120608
  Serious: Yes (Hospitalization)
  Sender: FDA-Public Use
  Company Number: PHHY2011US15388

PATIENT
  Sex: Female

DRUGS (9)
  1. DIURETICS (NO INGREDIENTS/SUBSTANCES) [Suspect]
  2. NIFEDIPINE [Concomitant]
  3. IRON (IRON) [Concomitant]
  4. MYFORTIC [Suspect]
     Indication: KIDNEY TRANSPLANT REJECTION
     Dosage: 180 MG, BID
  5. LOPRESSOR [Concomitant]
  6. PRAVASTATIN [Concomitant]
  7. ANTIHYPERTENSIVES (NO INGREDIENTS/SUBSTANCES) [Suspect]
  8. FOLIC ACID [Concomitant]
  9. NEORAL [Suspect]
     Indication: KIDNEY TRANSPLANT REJECTION

REACTIONS (10)
  - BLOOD CREATININE INCREASED [None]
  - HYPERTENSION [None]
  - RENAL FAILURE [None]
  - OEDEMA [None]
  - THROMBOSIS [None]
  - PAIN IN EXTREMITY [None]
  - KIDNEY TRANSPLANT REJECTION [None]
  - RENAL GRAFT LOSS [None]
  - SINUSITIS [None]
  - INAPPROPRIATE AFFECT [None]
